FAERS Safety Report 7556537-X (Version None)
Quarter: 2011Q2

REPORT INFORMATION
  Report Type: 
  Country: None (occurrence: None)
  Receive Date: 20110616
  Receipt Date: 20110616
  Transmission Date: 20111010
  Serious: No
  Sender: FDA-Public Use
  Company Number: None

PATIENT
  Age: 40 Year
  Sex: Female

DRUGS (3)
  1. GLIMEPIRIDE [Concomitant]
  2. ADVIL LIQUI-GELS [Concomitant]
  3. TAMOXIFEN CITRATE [Suspect]
     Dates: start: 20090415, end: 20100619

REACTIONS (6)
  - OOPHORECTOMY [None]
  - LIVER INJURY [None]
  - ALANINE AMINOTRANSFERASE INCREASED [None]
  - ASPARTATE AMINOTRANSFERASE INCREASED [None]
  - HYSTERECTOMY [None]
  - BLOOD ALKALINE PHOSPHATASE INCREASED [None]
